FAERS Safety Report 13778617 (Version 4)
Quarter: 2020Q3

REPORT INFORMATION
  Report Type: Report from Study
  Country: TW (occurrence: TW)
  Receive Date: 20170721
  Receipt Date: 20170915
  Transmission Date: 20201104
  Serious: Yes (Death, Life-Threatening, Hospitalization, Disabling, Other)
  Sender: FDA-Public Use
  Company Number: TW-ASTRAZENECA-2016SE58689

PATIENT
  Age: 18232 Day
  Sex: Female
  Weight: 35 kg

DRUGS (16)
  1. CEFTRIAXONE. [Concomitant]
     Active Substance: CEFTRIAXONE
     Indication: INFECTION PROPHYLAXIS
     Dosage: 1 G/VIAL, Q12H
     Route: 042
     Dates: start: 20160417, end: 20160419
  2. FENTANYL. [Concomitant]
     Active Substance: FENTANYL
     Indication: PAIN MANAGEMENT
     Dosage: 600.0UG AS REQUIRED
     Route: 061
     Dates: start: 20160503
  3. DEXAMETHASONE. [Concomitant]
     Active Substance: DEXAMETHASONE
     Indication: STOMATITIS
     Dosage: 5 GM/TUBE, BID
     Route: 002
     Dates: start: 20160523
  4. NAPROXEN. [Concomitant]
     Active Substance: NAPROXEN
     Indication: INFECTION
     Route: 048
     Dates: start: 20160421, end: 20160606
  5. FENTANYL. [Concomitant]
     Active Substance: FENTANYL
     Indication: PAIN MANAGEMENT
     Dosage: 200.0UG AS REQUIRED
     Route: 061
     Dates: start: 20160502, end: 20160502
  6. MEGESTROL [Concomitant]
     Active Substance: MEGESTROL
     Indication: DECREASED APPETITE
     Route: 048
     Dates: start: 20160502, end: 20160713
  7. CEFTRIAXONE. [Concomitant]
     Active Substance: CEFTRIAXONE
     Indication: INFECTION PROPHYLAXIS
     Dosage: 1 G/VIAL, Q12H
     Route: 042
     Dates: start: 20160531, end: 20160604
  8. VITAMIN K1 [Concomitant]
     Active Substance: PHYTONADIONE
     Indication: HEPATITIS ACUTE
     Dosage: 10.0MG ONCE/SINGLE ADMINISTRATION
     Route: 042
     Dates: start: 20160624, end: 20160624
  9. TREMELIMUMAB. [Suspect]
     Active Substance: TREMELIMUMAB
     Indication: BLADDER TRANSITIONAL CELL CARCINOMA
     Route: 042
     Dates: start: 20160509, end: 20160509
  10. MXL(MORPHINE SULFATE CONTINUS) [Concomitant]
     Indication: TUMOUR PAIN
     Route: 048
     Dates: start: 20160429, end: 20160705
  11. METOCLOPRAMIDE. [Concomitant]
     Active Substance: METOCLOPRAMIDE
     Indication: INCREASED APPETITE
     Route: 048
     Dates: start: 20160413, end: 20160713
  12. VITAMIN K1 [Concomitant]
     Active Substance: PHYTONADIONE
     Indication: HEPATITIS ACUTE
     Dosage: 10.0MG ONCE/SINGLE ADMINISTRATION
     Route: 042
     Dates: start: 20160603
  13. MEDI4736 [Suspect]
     Active Substance: DURVALUMAB
     Indication: BLADDER TRANSITIONAL CELL CARCINOMA
     Route: 042
     Dates: start: 20160509, end: 20160509
  14. CEFADROXIL MONOHYDRATE [Concomitant]
     Active Substance: CEFADROXIL
     Indication: INFECTION
     Route: 048
     Dates: start: 20160511, end: 20160517
  15. CONSLIFE [Concomitant]
     Indication: CONSTIPATION
     Dosage: 2 PC, BID
     Route: 048
     Dates: start: 20160513
  16. VITAMIN K1 [Concomitant]
     Active Substance: PHYTONADIONE
     Indication: HEPATITIS ACUTE
     Dosage: 10.0MG ONCE/SINGLE ADMINISTRATION
     Route: 042
     Dates: start: 20160531, end: 20160531

REACTIONS (2)
  - Deep vein thrombosis [Not Recovered/Not Resolved]
  - Drug-induced liver injury [Not Recovered/Not Resolved]

NARRATIVE: CASE EVENT DATE: 20160531
